FAERS Safety Report 7334463-9 (Version None)
Quarter: 2011Q1

REPORT INFORMATION
  Report Type: 
  Country: None (occurrence: None)
  Receive Date: 20110307
  Receipt Date: 20110222
  Transmission Date: 20110831
  Serious: Yes (Other)
  Sender: FDA-Public Use
  Company Number: PHFR2010GB06102

PATIENT
  Sex: Female

DRUGS (2)
  1. CLOZARIL [Suspect]
     Route: 048
     Dates: start: 19960930, end: 19000101
  2. CLOZARIL [Suspect]
     Indication: SCHIZOPHRENIA
     Dosage: UNK
     Route: 048
     Dates: start: 19960930

REACTIONS (1)
  - PLATELET COUNT INCREASED [None]
